FAERS Safety Report 9154357 (Version 1)
Quarter: 2013Q1

REPORT INFORMATION
  Report Type: Spontaneous
  Country: US (occurrence: US)
  Receive Date: 20130311
  Receipt Date: 20130311
  Transmission Date: 20140127
  Serious: No
  Sender: FDA-Public Use
  Company Number: US-ABBOTT-13P-163-1041403-00

PATIENT
  Age: 37 Year
  Sex: Female

DRUGS (1)
  1. LUPRON DEPOT [Suspect]
     Indication: ENDOMETRIOSIS
     Dates: start: 2012

REACTIONS (4)
  - Musculoskeletal pain [Unknown]
  - Pain in extremity [Unknown]
  - Arthralgia [Unknown]
  - Gait disturbance [Unknown]
